FAERS Safety Report 14150333 (Version 6)
Quarter: 2018Q1

REPORT INFORMATION
  Report Type: Report from Study
  Country: US (occurrence: US)
  Receive Date: 20171101
  Receipt Date: 20180206
  Transmission Date: 20180508
  Serious: Yes (Hospitalization, Other)
  Sender: FDA-Public Use
  Company Number: US-GILEAD-2017-0295348

PATIENT
  Age: 33 Year
  Sex: Male

DRUGS (10)
  1. AMBRISENTAN [Suspect]
     Active Substance: AMBRISENTAN
     Indication: PRODUCT USED FOR UNKNOWN INDICATION
     Dosage: 10 MG, QD
     Route: 065
     Dates: start: 20170614
  2. VENTAVIS [Concomitant]
     Active Substance: ILOPROST
  3. UPTRAVI [Suspect]
     Active Substance: SELEXIPAG
     Dosage: 1000 UG, BID
     Route: 065
     Dates: start: 20171112
  4. UPTRAVI [Suspect]
     Active Substance: SELEXIPAG
     Indication: PRODUCT USED FOR UNKNOWN INDICATION
     Dosage: UNK
     Route: 065
  5. UPTRAVI [Suspect]
     Active Substance: SELEXIPAG
     Dosage: 12000 UG, UNK
     Route: 065
  6. WARFARIN [Concomitant]
     Active Substance: WARFARIN
  7. NIFEDIPINE. [Concomitant]
     Active Substance: NIFEDIPINE
  8. UPTRAVI [Suspect]
     Active Substance: SELEXIPAG
     Dosage: 800 UG, UNK
     Route: 065
  9. TYVASO [Concomitant]
     Active Substance: TREPROSTINIL
  10. ADCIRCA [Concomitant]
     Active Substance: TADALAFIL

REACTIONS (9)
  - Irritable bowel syndrome [Not Recovered/Not Resolved]
  - Flushing [Not Recovered/Not Resolved]
  - Intestinal obstruction [Unknown]
  - Gastric disorder [Not Recovered/Not Resolved]
  - Pneumonia [Not Recovered/Not Resolved]
  - Mechanical ventilation [Not Recovered/Not Resolved]
  - Abdominal pain upper [Not Recovered/Not Resolved]
  - Diarrhoea [Not Recovered/Not Resolved]
  - Headache [Not Recovered/Not Resolved]
